FAERS Safety Report 24648926 (Version 2)
Quarter: 2024Q4

REPORT INFORMATION
  Report Type: Spontaneous
  Country: SE (occurrence: SE)
  Receive Date: 20241121
  Receipt Date: 20241127
  Transmission Date: 20250115
  Serious: Yes (Life-Threatening, Other)
  Sender: PURDUE
  Company Number: SE-MYLANLABS-2024M1099280

PATIENT
  Age: 85 Year
  Sex: Male

DRUGS (4)
  1. MORPHINE SULFATE [Suspect]
     Active Substance: MORPHINE SULFATE
     Indication: Product used for unknown indication
     Dosage: UNK
     Route: 065
  2. ASPIRIN\CAFFEINE\CODEINE [Suspect]
     Active Substance: ASPIRIN\CAFFEINE\CODEINE
     Indication: Analgesic therapy
     Dosage: UNK (6-8 EFFERVESCENT TABLETS OF TREO COMP PER DAY)
     Route: 065
  3. ASPIRIN\CAFFEINE\CODEINE [Suspect]
     Active Substance: ASPIRIN\CAFFEINE\CODEINE
     Indication: Patella fracture
  4. ENALAPRIL [Suspect]
     Active Substance: ENALAPRIL
     Indication: Product used for unknown indication
     Dosage: UNK
     Route: 065

REACTIONS (3)
  - Respiratory tract oedema [Unknown]
  - Drug hypersensitivity [Unknown]
  - Product use issue [Unknown]
